FAERS Safety Report 20926446 (Version 1)
Quarter: 2022Q2

REPORT INFORMATION
  Report Type: Spontaneous
  Country: US (occurrence: US)
  Receive Date: 20220607
  Receipt Date: 20220607
  Transmission Date: 20220720
  Serious: No
  Sender: FDA-Public Use
  Company Number: US-METUCHEN-STN-2022-0005

PATIENT
  Sex: Male

DRUGS (2)
  1. STENDRA [Suspect]
     Active Substance: AVANAFIL
     Indication: Product used for unknown indication
     Route: 048
  2. CIALIS [Suspect]
     Active Substance: TADALAFIL
     Indication: Product used for unknown indication
     Route: 048

REACTIONS (3)
  - Hypersensitivity [Unknown]
  - Expired product administered [Unknown]
  - Drug interaction [Unknown]
